FAERS Safety Report 8375641-X (Version None)
Quarter: 2012Q2

REPORT INFORMATION
  Report Type: 
  Country: None (occurrence: None)
  Receive Date: 20120522
  Receipt Date: 20120516
  Transmission Date: 20120825
  Serious: Yes (Other)
  Sender: FDA-Public Use
  Company Number: US-PFIZER INC-2005122950

PATIENT
  Sex: Female

DRUGS (8)
  1. TEGRETOL [Concomitant]
     Indication: CONVULSION
     Dosage: UNK
     Dates: start: 19850101
  2. PREMARIN [Suspect]
     Indication: HORMONE REPLACEMENT THERAPY
     Dosage: UNK
     Route: 048
     Dates: start: 19930101, end: 19970101
  3. EVISTA [Suspect]
     Indication: HORMONE REPLACEMENT THERAPY
     Dosage: 60 MG, UNK
     Route: 048
     Dates: start: 20010101, end: 20010101
  4. CYCRIN [Suspect]
     Indication: HORMONE REPLACEMENT THERAPY
     Dosage: UNK
     Dates: start: 19940101, end: 19940101
  5. PROVERA [Suspect]
     Indication: HORMONE REPLACEMENT THERAPY
     Dosage: UNK
     Route: 048
     Dates: start: 19930101, end: 19970101
  6. MEDROXYPROGESTERONE ACETATE [Suspect]
     Indication: HORMONE REPLACEMENT THERAPY
     Dosage: UNK
     Route: 048
  7. PREMPRO [Suspect]
     Indication: HORMONE REPLACEMENT THERAPY
     Dosage: 0.625 MG/2.5MG
     Route: 048
     Dates: start: 19960101, end: 20040201
  8. CITRUCEL [Concomitant]
     Indication: SUPPLEMENTATION THERAPY
     Dosage: UNK
     Dates: start: 20020101

REACTIONS (1)
  - BREAST CANCER FEMALE [None]
